FAERS Safety Report 12469643 (Version 1)
Quarter: 2016Q2

REPORT INFORMATION
  Report Type: Spontaneous
  Country: KR (occurrence: KR)
  Receive Date: 20160615
  Receipt Date: 20160615
  Transmission Date: 20160815
  Serious: Yes (Other)
  Sender: FDA-Public Use
  Company Number: KR-BRISTOL-MYERS SQUIBB COMPANY-BMS-2016-046838

PATIENT
  Age: 88 Year
  Sex: Female

DRUGS (10)
  1. PRAVASTATIN [Concomitant]
     Active Substance: PRAVASTATIN\PRAVASTATIN SODIUM
     Indication: DISTURBANCE IN ATTENTION
     Dosage: UNK
     Route: 065
     Dates: start: 20100429
  2. ESCITALOPRAM [Concomitant]
     Active Substance: ESCITALOPRAM OXALATE
     Indication: SCHIZOPHRENIA
     Dosage: UNK
     Route: 065
     Dates: start: 20111005
  3. NICORANDIL [Concomitant]
     Active Substance: NICORANDIL
     Indication: GENERALISED ANXIETY DISORDER
     Dosage: UNK
     Route: 065
     Dates: start: 20100409
  4. BENZATROPINE [Concomitant]
     Active Substance: BENZTROPINE
     Indication: SCHIZOPHRENIA
     Dosage: UNK
     Route: 065
     Dates: start: 20111107
  5. HALOPERIDOL. [Concomitant]
     Active Substance: HALOPERIDOL
     Indication: BIPOLAR DISORDER
     Dosage: UNK
     Route: 065
     Dates: start: 20111109, end: 20111109
  6. NEBIVOLOL. [Suspect]
     Active Substance: NEBIVOLOL
     Indication: OBSESSIVE-COMPULSIVE DISORDER
     Dosage: UNK
     Route: 065
     Dates: start: 20100629, end: 20111107
  7. DONEPEZIL. [Concomitant]
     Active Substance: DONEPEZIL
     Indication: SCHIZOPHRENIA
     Dosage: UNK
     Route: 065
     Dates: start: 20110914
  8. ABILIFY [Suspect]
     Active Substance: ARIPIPRAZOLE
     Indication: TIC
     Dosage: UNK
     Route: 065
     Dates: start: 20110922
  9. ACETYLCARNITINE [Concomitant]
     Active Substance: ACETYLCARNITINE
     Indication: SCHIZOPHRENIA
     Dosage: UNK
     Route: 065
     Dates: start: 20111022
  10. ACETYLSALICYLIC ACID [Concomitant]
     Active Substance: ASPIRIN
     Indication: SCHIZOPHRENIA
     Dosage: UNK
     Route: 065
     Dates: start: 20100429

REACTIONS (3)
  - Product use issue [Unknown]
  - Bradycardia [Unknown]
  - Arrhythmia [Unknown]
